FAERS Safety Report 22297005 (Version 1)
Quarter: 2023Q2

REPORT INFORMATION
  Report Type: Spontaneous
  Country: IN (occurrence: IN)
  Receive Date: 20230509
  Receipt Date: 20230509
  Transmission Date: 20230722
  Serious: Yes (Death, Hospitalization, Other)
  Sender: FDA-Public Use
  Company Number: IN-STERISCIENCE B.V.-2023-ST-001269

PATIENT
  Age: 64 Year
  Sex: Male

DRUGS (7)
  1. VANCOMYCIN [Suspect]
     Active Substance: VANCOMYCIN
     Indication: Prosthetic valve endocarditis
     Dosage: UNK
     Route: 065
     Dates: start: 2022
  2. VANCOMYCIN [Suspect]
     Active Substance: VANCOMYCIN
     Indication: Endocarditis bacterial
  3. VANCOMYCIN [Suspect]
     Active Substance: VANCOMYCIN
     Indication: Bacterial infection
  4. MEROPENEM [Suspect]
     Active Substance: MEROPENEM
     Indication: Prosthetic valve endocarditis
     Dosage: UNK
     Route: 065
     Dates: start: 2022
  5. MEROPENEM [Suspect]
     Active Substance: MEROPENEM
     Indication: Endocarditis bacterial
  6. MEROPENEM [Suspect]
     Active Substance: MEROPENEM
     Indication: Bacterial infection
  7. REMDESIVIR [Suspect]
     Active Substance: REMDESIVIR
     Indication: COVID-19
     Dosage: UNK
     Route: 065
     Dates: start: 2022

REACTIONS (1)
  - Drug ineffective [Fatal]

NARRATIVE: CASE EVENT DATE: 20220101
